FAERS Safety Report 21458896 (Version 1)
Quarter: 2022Q4

REPORT INFORMATION
  Report Type: Spontaneous
  Country: CA (occurrence: CA)
  Receive Date: 20221014
  Receipt Date: 20221014
  Transmission Date: 20230112
  Serious: Yes (Other)
  Sender: FDA-Public Use
  Company Number: CA-SLATE RUN PHARMACEUTICALS-22CA001369

PATIENT

DRUGS (7)
  1. GANCICLOVIR [Suspect]
     Active Substance: GANCICLOVIR
     Indication: Herpes simplex necrotising retinopathy
     Dosage: 2 MILLIGRAM, 2/WEEK
  2. GANCICLOVIR [Suspect]
     Active Substance: GANCICLOVIR
     Indication: Necrotising retinitis
  3. VALACYCLOVIR [Suspect]
     Active Substance: VALACYCLOVIR HYDROCHLORIDE
     Indication: Herpes simplex necrotising retinopathy
     Dosage: 1 GRAM
     Route: 048
  4. VALACYCLOVIR [Suspect]
     Active Substance: VALACYCLOVIR HYDROCHLORIDE
     Indication: Necrotising retinitis
     Dosage: 2 GRAM, TID
     Route: 048
  5. VALACYCLOVIR [Suspect]
     Active Substance: VALACYCLOVIR HYDROCHLORIDE
     Indication: Prophylaxis
  6. DIFLUPREDNATE [Suspect]
     Active Substance: DIFLUPREDNATE
     Indication: Herpes simplex necrotising retinopathy
     Dosage: UNK, QID
  7. DIFLUPREDNATE [Suspect]
     Active Substance: DIFLUPREDNATE
     Indication: Necrotising retinitis

REACTIONS (3)
  - Necrotising retinitis [Recovered/Resolved]
  - Drug ineffective for unapproved indication [Recovered/Resolved]
  - Off label use [Recovered/Resolved]
